FAERS Safety Report 23633647 (Version 1)
Quarter: 2024Q1

REPORT INFORMATION
  Report Type: Spontaneous
  Country: US (occurrence: US)
  Receive Date: 20240314
  Receipt Date: 20240314
  Transmission Date: 20240410
  Serious: Yes (Death, Other)
  Sender: FDA-Public Use
  Company Number: US-AMGEN-USASP2024049643

PATIENT
  Age: 18 Year
  Sex: Male

DRUGS (2)
  1. INFLIXIMAB [Suspect]
     Active Substance: INFLIXIMAB
     Indication: Acute graft versus host disease
     Dosage: UNK
     Route: 065
  2. BEGELOMAB [Concomitant]
     Active Substance: BEGELOMAB
     Indication: Acute graft versus host disease
     Dosage: 2.7 MILLIGRAM/SQ. METER, QD (TOTALING 7 DOSES)
     Route: 042

REACTIONS (8)
  - Death [Fatal]
  - Acute respiratory distress syndrome [Unknown]
  - Acute kidney injury [Unknown]
  - Atrial flutter [Unknown]
  - Pulmonary mass [Unknown]
  - Off label use [Unknown]
  - Cytomegalovirus infection [Unknown]
  - BK virus infection [Unknown]
